FAERS Safety Report 6910524-0 (Version None)
Quarter: 2010Q3

REPORT INFORMATION
  Report Type: 
  Country: None (occurrence: None)
  Receive Date: 20100806
  Receipt Date: 20100802
  Transmission Date: 20110219
  Serious: Yes (Hospitalization)
  Sender: FDA-Public Use
  Company Number: CHPA2010US12431

PATIENT
  Age: 4 Year
  Sex: Male

DRUGS (1)
  1. TRIAMINIC DAY TIME COLD + COUGH (NCH) [Suspect]
     Indication: NASOPHARYNGITIS
     Dosage: 4 DOSES IN 2 DAYS
     Route: 048
     Dates: start: 20100701, end: 20100701

REACTIONS (2)
  - HEART RATE INCREASED [None]
  - RESPIRATORY RATE INCREASED [None]
